FAERS Safety Report 21996787 (Version 10)
Quarter: 2023Q4

REPORT INFORMATION
  Report Type: Report from Study
  Country: FR (occurrence: FR)
  Receive Date: 20230215
  Receipt Date: 20231019
  Transmission Date: 20240110
  Serious: Yes (Hospitalization, Other)
  Sender: FDA-Public Use
  Company Number: FR-GILEAD-2022-0596390

PATIENT
  Sex: Female
  Weight: 56 kg

DRUGS (16)
  1. SACITUZUMAB GOVITECAN-HZIY [Suspect]
     Active Substance: SACITUZUMAB GOVITECAN-HZIY
     Indication: Triple negative breast cancer
     Dosage: 10 MG/KG, CYCLE 1, DAY 1, 8
     Route: 042
     Dates: start: 20220518, end: 20220525
  2. SACITUZUMAB GOVITECAN-HZIY [Suspect]
     Active Substance: SACITUZUMAB GOVITECAN-HZIY
     Dosage: 10 MG/KG, CYCLE 2, DAY 1, 8
     Route: 042
     Dates: start: 20220615, end: 20220622
  3. SACITUZUMAB GOVITECAN-HZIY [Suspect]
     Active Substance: SACITUZUMAB GOVITECAN-HZIY
     Dosage: 10 MG/KG, CYCLE 3, DAY 1, 8
     Route: 042
     Dates: start: 20220706, end: 20220713
  4. SACITUZUMAB GOVITECAN-HZIY [Suspect]
     Active Substance: SACITUZUMAB GOVITECAN-HZIY
     Dosage: 10 MG/KG, CYCLE 4, DAY 1, 8
     Route: 042
     Dates: start: 20220727, end: 20220803
  5. SACITUZUMAB GOVITECAN-HZIY [Suspect]
     Active Substance: SACITUZUMAB GOVITECAN-HZIY
     Dosage: 10 MG/KG, CYCLE 5, DAY 1, 8
     Route: 042
     Dates: start: 20220822, end: 20220829
  6. SACITUZUMAB GOVITECAN-HZIY [Suspect]
     Active Substance: SACITUZUMAB GOVITECAN-HZIY
     Dosage: 10 MG/KG ON C6D1 AND C6D8
     Route: 042
     Dates: start: 20220919, end: 20220926
  7. SACITUZUMAB GOVITECAN-HZIY [Suspect]
     Active Substance: SACITUZUMAB GOVITECAN-HZIY
     Dosage: CYCLE 8, USED TWO VIALS INSTEAD OF 3
     Route: 042
  8. SACITUZUMAB GOVITECAN-HZIY [Suspect]
     Active Substance: SACITUZUMAB GOVITECAN-HZIY
     Dosage: 10 MG/KG, C7D1 AND C7D8
     Route: 042
     Dates: start: 20221017, end: 20221031
  9. SACITUZUMAB GOVITECAN-HZIY [Suspect]
     Active Substance: SACITUZUMAB GOVITECAN-HZIY
     Dosage: 10 MG/KG ON C8D1, D8
     Route: 042
     Dates: start: 20221114, end: 20221121
  10. SACITUZUMAB GOVITECAN-HZIY [Suspect]
     Active Substance: SACITUZUMAB GOVITECAN-HZIY
     Dosage: 10 MG/KG C9 D1
     Route: 042
     Dates: start: 20221205
  11. SACITUZUMAB GOVITECAN-HZIY [Suspect]
     Active Substance: SACITUZUMAB GOVITECAN-HZIY
     Dosage: 10 MG/KG C10 D1/D8
     Route: 042
     Dates: start: 20230109, end: 20230116
  12. SACITUZUMAB GOVITECAN-HZIY [Suspect]
     Active Substance: SACITUZUMAB GOVITECAN-HZIY
     Dosage: 10 MG/KG C11 D1/D8
     Route: 042
     Dates: start: 20230130, end: 20230206
  13. SACITUZUMAB GOVITECAN-HZIY [Suspect]
     Active Substance: SACITUZUMAB GOVITECAN-HZIY
     Dosage: 10 MG/KG C12 D1/D8
     Route: 042
     Dates: start: 20230306
  14. SACITUZUMAB GOVITECAN-HZIY [Suspect]
     Active Substance: SACITUZUMAB GOVITECAN-HZIY
     Dosage: 10 MG/KG C13 D1/D8
     Route: 042
     Dates: start: 20230602, end: 20230609
  15. SACITUZUMAB GOVITECAN-HZIY [Suspect]
     Active Substance: SACITUZUMAB GOVITECAN-HZIY
     Dosage: 10 MG/KG C14 D1/D8
     Route: 042
     Dates: start: 20230623, end: 20230630
  16. PRIMPERAN [Concomitant]
     Active Substance: METOCLOPRAMIDE HYDROCHLORIDE

REACTIONS (12)
  - Neutropenia [Recovered/Resolved]
  - Neutropenia [Unknown]
  - Neutropenia [Recovered/Resolved]
  - Cardiac failure [Unknown]
  - Malaise [Unknown]
  - Pyrexia [Recovered/Resolved]
  - Asthenia [Unknown]
  - Inappropriate schedule of product administration [Recovered/Resolved]
  - Inappropriate schedule of product administration [Recovered/Resolved]
  - Inappropriate schedule of product administration [Unknown]
  - Off label use [Unknown]
  - Off label use [Not Recovered/Not Resolved]

NARRATIVE: CASE EVENT DATE: 20220525
